FAERS Safety Report 4754847-2 (Version None)
Quarter: 2005Q3

REPORT INFORMATION
  Report Type: 
  Country: None (occurrence: None)
  Receive Date: 20050829
  Receipt Date: 20041223
  Transmission Date: 20060218
  Serious: Yes (Hospitalization, Disabling, Other)
  Sender: FDA-Public Use
  Company Number: US-MERCK-0412USA02879

PATIENT
  Age: 53 Year
  Sex: Male
  Weight: 76 kg

DRUGS (5)
  1. VIOXX [Suspect]
     Indication: GENERAL SYMPTOM
     Route: 048
     Dates: start: 20000101, end: 20040930
  2. VIOXX [Suspect]
     Route: 048
     Dates: start: 20000101
  3. VIOXX [Suspect]
     Route: 048
     Dates: start: 20000302
  4. ZYLOPRIM [Concomitant]
     Route: 048
  5. COLCHICINE [Concomitant]
     Indication: GOUT
     Route: 065

REACTIONS (3)
  - HYPERLIPIDAEMIA [None]
  - ISCHAEMIC CARDIOMYOPATHY [None]
  - MYOCARDIAL INFARCTION [None]
